FAERS Safety Report 10330791 (Version 1)
Quarter: 2014Q3

REPORT INFORMATION
  Report Type: Spontaneous
  Country: DE (occurrence: DE)
  Receive Date: 20140722
  Receipt Date: 20140722
  Transmission Date: 20150326
  Serious: Yes (Congenital Anomaly)
  Sender: FDA-Public Use
  Company Number: DE-RANBAXY-2014RR-83722

PATIENT
  Sex: Male

DRUGS (7)
  1. SALBUTAMOL [Suspect]
     Active Substance: ALBUTEROL
     Indication: ASTHMA
     Dosage: ONLY IF REQUIRED, DURING 0-11.6 GESTATIONAL WEEKS
     Route: 064
     Dates: start: 20130327, end: 20130618
  2. CELEBREX [Suspect]
     Active Substance: CELECOXIB
     Indication: SPONDYLOLISTHESIS
     Dosage: 200 MG, QD, DURING 0-8.5 GESTATIONAL WEEKS
     Route: 064
  3. TETRAZEPAM [Suspect]
     Active Substance: TETRAZEPAM
     Indication: HYPOTONIA
     Dosage: 50 MG, QD, DURING 0-8.5 GESTATIONAL WEEKS
     Route: 064
  4. VIANI [Suspect]
     Active Substance: FLUTICASONE PROPIONATE\SALMETEROL XINAFOATE
     Indication: ASTHMA
     Dosage: DURING 0-8.5 GESTATIONAL WEEKS
     Route: 064
  5. PROSTAGLANDIN [Concomitant]
     Indication: LABOUR INDUCTION
     Dosage: ON 41.1 GESTATIONAL WEEK
     Route: 064
     Dates: start: 20140109, end: 20140109
  6. IBUPROFEN. [Suspect]
     Active Substance: IBUPROFEN
     Indication: SPONDYLOLISTHESIS
     Dosage: 800 MG, TID, DURING 0-8.5 GESTATIONAL WEEKS
     Route: 064
  7. FOLIO FORTE [Concomitant]
     Active Substance: FOLIC ACID\VITAMINS
     Indication: PROPHYLAXIS OF NEURAL TUBE DEFECT
     Dosage: 0.8 MG, QD, DURING 7.2-41.1 GESTATIONAL WEEKS
     Route: 064
     Dates: start: 20130517, end: 20140109

REACTIONS (2)
  - Transposition of the great vessels [Recovered/Resolved with Sequelae]
  - Ventricular septal defect [Recovered/Resolved with Sequelae]
